FAERS Safety Report 6414265-8 (Version None)
Quarter: 2009Q4

REPORT INFORMATION
  Report Type: 
  Country: None (occurrence: None)
  Receive Date: 20091026
  Receipt Date: 20091014
  Transmission Date: 20100525
  Serious: Yes (Death, Hospitalization)
  Sender: FDA-Public Use
  Company Number: TR-PFIZER INC-2007054885

PATIENT
  Age: 51 Year

DRUGS (2)
  1. SUNITINIB MALATE [Suspect]
     Indication: METASTATIC RENAL CELL CARCINOMA
     Dosage: 50 MG, 1X/DAY
     Route: 048
     Dates: start: 20060512, end: 20070402
  2. SUNITINIB MALATE [Suspect]
     Route: 048
     Dates: start: 20070412, end: 20070510

REACTIONS (4)
  - DISEASE PROGRESSION [None]
  - HYPERCALCAEMIA [None]
  - HYPOTHYROIDISM [None]
  - METASTATIC RENAL CELL CARCINOMA [None]
